FAERS Safety Report 16106911 (Version 2)
Quarter: 2019Q1

REPORT INFORMATION
  Report Type: Spontaneous
  Country: IT (occurrence: IT)
  Receive Date: 20190322
  Receipt Date: 20190328
  Transmission Date: 20190418
  Serious: Yes (Death)
  Sender: FDA-Public Use
  Company Number: IT-PFIZER INC-2019119887

PATIENT
  Age: 57 Year
  Sex: Female

DRUGS (6)
  1. METHYLPREDNISOLONE. [Suspect]
     Active Substance: METHYLPREDNISOLONE
     Dosage: 750 MG, DAILY[6 CYCLES, 4500 MG]
     Route: 048
     Dates: start: 201110, end: 201203
  2. CYCLOPHOSPHAMIDE. [Suspect]
     Active Substance: CYCLOPHOSPHAMIDE
     Dosage: TOTALLING ABOUT 16 GRAMS
     Dates: start: 201301, end: 201308
  3. METHYLPREDNISOLONE. [Suspect]
     Active Substance: METHYLPREDNISOLONE
     Dosage: TOTALLING ABOUT 16 GRAMS
     Dates: start: 201301, end: 201308
  4. HUMAN IMMUNOGLOBULIN [Suspect]
     Active Substance: HUMAN IMMUNOGLOBULIN G
     Indication: CENTRAL NERVOUS SYSTEM VASCULITIS
     Dosage: 20 G, 1X/DAY[FOR 5 DAYS]
     Route: 042
  5. RITUXIMAB. [Suspect]
     Active Substance: RITUXIMAB
     Dosage: 1000 MG, MONTHLY [2 INFUSIONS]
     Route: 042
  6. CYCLOPHOSPHAMIDE. [Suspect]
     Active Substance: CYCLOPHOSPHAMIDE
     Dosage: 750 MG, DAILY[6 CYCLES, 4500 MG]
     Route: 065
     Dates: start: 201110, end: 201203

REACTIONS (1)
  - Drug ineffective [Fatal]
